FAERS Safety Report 24555619 (Version 1)
Quarter: 2024Q4

REPORT INFORMATION
  Report Type: Spontaneous
  Country: US (occurrence: None)
  Receive Date: 20241025
  Receipt Date: 20241025
  Transmission Date: 20250115
  Serious: Yes (Hospitalization)
  Sender: Public
  Company Number: None

PATIENT
  Age: 59 Year
  Sex: Female

DRUGS (1)
  1. INGREZZA [Suspect]
     Active Substance: VALBENAZINE
     Indication: Tardive dyskinesia
     Dates: start: 20240718

REACTIONS (4)
  - Fall [None]
  - Blood sodium decreased [None]
  - Foot fracture [None]
  - Balance disorder [None]

NARRATIVE: CASE EVENT DATE: 20241013
